FAERS Safety Report 6813506-2 (Version None)
Quarter: 2010Q3

REPORT INFORMATION
  Report Type: 
  Country: None (occurrence: None)
  Receive Date: 20100701
  Receipt Date: 20100625
  Transmission Date: 20110219
  Serious: Yes (Other)
  Sender: FDA-Public Use
  Company Number: JP-ABBOTT-10P-087-0653778-00

PATIENT
  Sex: Male

DRUGS (1)
  1. KLARICID [Suspect]
     Indication: CHRONIC SINUSITIS

REACTIONS (2)
  - ANAEMIA HAEMOLYTIC AUTOIMMUNE [None]
  - JAUNDICE [None]
